FAERS Safety Report 5867689-1 (Version None)
Quarter: 2008Q3

REPORT INFORMATION
  Report Type: 
  Country: None (occurrence: None)
  Receive Date: 20080902
  Receipt Date: 20080130
  Transmission Date: 20090109
  Serious: No
  Sender: FDA-Public Use
  Company Number: US-ABBOTT-08P-163-0436065-00

PATIENT
  Sex: Male
  Weight: 90.8 kg

DRUGS (9)
  1. DEPAKOTE ER [Suspect]
     Indication: HEADACHE
     Route: 048
     Dates: start: 20071201, end: 20080101
  2. DEPAKOTE ER [Suspect]
     Route: 048
     Dates: start: 20080101
  3. TOPIRAMATE [Concomitant]
     Indication: HEADACHE
     Route: 048
  4. CLOPIDOGREL [Concomitant]
     Indication: THROMBOSIS PROPHYLAXIS
     Route: 048
  5. ACETYLSALICYLIC ACID SRT [Concomitant]
     Indication: ANTICOAGULANT THERAPY
     Route: 048
  6. DIOVAN HCT [Concomitant]
     Indication: HYPERTENSION
     Route: 048
  7. AMLODIPINE [Concomitant]
     Indication: HYPERTENSION
     Route: 048
  8. TEKTURA [Concomitant]
     Indication: HYPERTENSION
     Route: 048
  9. CARVEDILOL [Concomitant]
     Indication: HYPERTENSION
     Route: 048

REACTIONS (3)
  - BLOOD PRESSURE INCREASED [None]
  - CHEST PAIN [None]
  - DRUG INEFFECTIVE [None]
